FAERS Safety Report 22394020 (Version 2)
Quarter: 2023Q2

REPORT INFORMATION
  Report Type: Spontaneous
  Country: US (occurrence: US)
  Receive Date: 20230601
  Receipt Date: 20230601
  Transmission Date: 20230722
  Serious: No
  Sender: FDA-Public Use
  Company Number: US-APIL-2312358US

PATIENT
  Sex: Female

DRUGS (3)
  1. PRED MILD [Suspect]
     Active Substance: PREDNISOLONE ACETATE
     Indication: Product used for unknown indication
  2. PRED FORTE [Suspect]
     Active Substance: PREDNISOLONE ACETATE
     Indication: Product used for unknown indication
  3. PRED FORTE [Suspect]
     Active Substance: PREDNISOLONE ACETATE

REACTIONS (1)
  - Procedural pain [Unknown]
